FAERS Safety Report 8771700 (Version 1)
Quarter: 2012Q4

REPORT INFORMATION
  Report Type: 
  Country: FR (occurrence: FR)
  Receive Date: 20120904
  Receipt Date: 20120904
  Transmission Date: 20130627
  Serious: Yes (Hospitalization)
  Sender: FDA-Public Use
  Company Number: FR-ELI_LILLY_AND_COMPANY-FR201112007436

PATIENT
  Age: 62 Year
  Sex: Female
  Weight: 34 kg

DRUGS (5)
  1. FORSTEO [Suspect]
     Indication: OSTEOPOROSIS
     Dosage: 20 ug, qd
     Route: 058
     Dates: start: 20111217, end: 20111220
  2. DAFLON [Concomitant]
     Dosage: 3 u, qd
  3. CACIT D3 [Concomitant]
     Dosage: 2 u, qd
  4. PIASCLEDINE                        /00809501/ [Concomitant]
     Dosage: 1 u, qd
  5. MOPRAL [Concomitant]
     Dosage: 1 u, qd

REACTIONS (2)
  - Urticaria [Recovered/Resolved]
  - Pruritus [Recovered/Resolved]
